FAERS Safety Report 5657478-5 (Version None)
Quarter: 2008Q1

REPORT INFORMATION
  Report Type: 
  Country: None (occurrence: None)
  Receive Date: 20080310
  Receipt Date: 20080306
  Transmission Date: 20080703
  Serious: Yes (Other)
  Sender: FDA-Public Use
  Company Number: GB-WYE-G00886108

PATIENT
  Sex: Female

DRUGS (7)
  1. EFFEXOR XR [Suspect]
     Route: 048
     Dates: start: 20071113
  2. MIDODRINE [Concomitant]
     Dosage: 5MG, FREQUENCY UNKNOWN
  3. SERETIDE [Concomitant]
     Dosage: UNKNOWN
     Route: 055
  4. LANSOPRAZOLE [Concomitant]
     Dosage: UNKNOWN
  5. BRICANYL [Concomitant]
     Dosage: UNKNOWN
     Route: 055
  6. PREGABALIN [Concomitant]
  7. CO-DYDRAMOL [Concomitant]
     Dosage: UNKNOWN

REACTIONS (3)
  - APHONIA [None]
  - HAEMOPTYSIS [None]
  - LOWER RESPIRATORY TRACT INFECTION [None]
